FAERS Safety Report 7046451-0 (Version None)
Quarter: 2010Q4

REPORT INFORMATION
  Report Type: 
  Country: None (occurrence: None)
  Receive Date: 20101014
  Receipt Date: 20101007
  Transmission Date: 20110411
  Serious: Yes (Hospitalization, Other)
  Sender: FDA-Public Use
  Company Number: US-ELI_LILLY_AND_COMPANY-US200906005668

PATIENT
  Sex: Female
  Weight: 98.413 kg

DRUGS (28)
  1. BYETTA [Suspect]
     Indication: TYPE 2 DIABETES MELLITUS
     Dosage: 5 UG, 2/D
     Route: 058
     Dates: start: 20060127, end: 20060522
  2. BYETTA [Suspect]
     Dosage: 10 UG, 2/D
     Route: 058
     Dates: start: 20060522, end: 20080512
  3. AMBIEN [Concomitant]
     Dosage: 10 MG, EACH EVENING
     Route: 048
     Dates: start: 20051229
  4. SINGULAIR [Concomitant]
     Dosage: 10 MG, EACH EVENING
     Route: 048
     Dates: start: 20051229
  5. VICODIN [Concomitant]
     Dosage: UNK, AS NEEDED
     Route: 048
     Dates: start: 20051128
  6. GLUCOVANCE [Concomitant]
     Dosage: UNK, 2/D
     Route: 048
     Dates: start: 20051128
  7. ZANTAC [Concomitant]
     Dosage: 150 MG, 2/D
     Route: 048
     Dates: start: 20051128
  8. BIOTIN [Concomitant]
     Dosage: 400 UG, DAILY (1/D)
     Route: 048
     Dates: start: 20051128
  9. CELEXA [Concomitant]
     Dosage: 60 MG, DAILY (1/D)
     Route: 048
     Dates: start: 20050725
  10. IMURAN [Concomitant]
     Dosage: 50 MG, DAILY (1/D)
     Route: 048
     Dates: start: 20050627
  11. LUNESTA [Concomitant]
     Dosage: UNK, AS NEEDED
     Route: 048
     Dates: end: 20060803
  12. EFFEXOR XR [Concomitant]
     Dosage: 75 MG, 2/D
     Route: 048
     Dates: start: 20060522
  13. LASIX [Concomitant]
     Indication: DIURETIC THERAPY
     Dosage: 20 MG, DAILY (1/D)
     Route: 048
     Dates: start: 20060330, end: 20060803
  14. MICRO-K [Concomitant]
     Dosage: 10 MEQ, DAILY (1/D)
     Route: 048
     Dates: start: 20060330
  15. ADVAIR DISKUS 100/50 [Concomitant]
     Dosage: UNK, 2/D
     Route: 055
     Dates: start: 20060330
  16. ACIPHEX [Concomitant]
     Indication: ANTACID THERAPY
     Dosage: 20 MG, DAILY (1/D)
     Route: 048
     Dates: start: 20050627
  17. ZESTRIL [Concomitant]
     Dosage: 5 MG, DAILY (1/D)
     Route: 048
     Dates: start: 20050627
  18. SENOKOT [Concomitant]
     Dosage: UNK, EACH EVENING
     Route: 048
     Dates: start: 20060717, end: 20060803
  19. SYNTHROID [Concomitant]
     Dosage: 25 UG, DAILY (1/D)
     Route: 048
     Dates: start: 20050627
  20. SYNTHROID [Concomitant]
     Dosage: 0.2 MG, DAILY (1/D)
     Route: 048
  21. XANAX [Concomitant]
     Dosage: 0.25 MG, AS NEEDED
     Route: 048
     Dates: start: 20050627
  22. CYMBALTA [Concomitant]
     Dosage: 60 MG, UNK
     Dates: start: 20060921
  23. IRON [Concomitant]
  24. LISINOPRIL AND HYDROCHLOROTHIAZIDE [Concomitant]
     Dosage: UNK, EACH MORNING
     Route: 048
  25. NOVOLOG [Concomitant]
     Dosage: 30 U, UNK
  26. REMICADE [Concomitant]
     Dosage: UNK, MONTHLY (1/M)
  27. LEVEMIR [Concomitant]
     Indication: DIABETES MELLITUS
     Route: 048
  28. PAXIL [Concomitant]
     Indication: ANTIDEPRESSANT THERAPY

REACTIONS (7)
  - ABDOMINAL DISTENSION [None]
  - ABDOMINAL PAIN [None]
  - DRUG DOSE OMISSION [None]
  - NAUSEA [None]
  - OFF LABEL USE [None]
  - PANCREATITIS ACUTE [None]
  - RENAL INJURY [None]
